FAERS Safety Report 17970276 (Version 1)
Quarter: 2020Q3

REPORT INFORMATION
  Report Type: Spontaneous
  Country: US (occurrence: US)
  Receive Date: 20200701
  Receipt Date: 20200701
  Transmission Date: 20201103
  Serious: Yes (Other)
  Sender: FDA-Public Use
  Company Number: US-SA-2020SA169578

PATIENT

DRUGS (6)
  1. ARAVA [Suspect]
     Active Substance: LEFLUNOMIDE
     Indication: PRODUCT USED FOR UNKNOWN INDICATION
  2. REMICADE [Suspect]
     Active Substance: INFLIXIMAB
     Indication: PRODUCT USED FOR UNKNOWN INDICATION
  3. HYDROXYCHLOROQUINE [Suspect]
     Active Substance: HYDROXYCHLOROQUINE
     Indication: PRODUCT USED FOR UNKNOWN INDICATION
     Dosage: UNK
  4. RINVOQ [Suspect]
     Active Substance: UPADACITINIB
     Indication: PRODUCT USED FOR UNKNOWN INDICATION
  5. HUMIRA [Suspect]
     Active Substance: ADALIMUMAB
     Indication: PRODUCT USED FOR UNKNOWN INDICATION
     Route: 058
  6. METHOTREXATE. [Suspect]
     Active Substance: METHOTREXATE
     Indication: PRODUCT USED FOR UNKNOWN INDICATION

REACTIONS (19)
  - General physical condition abnormal [Unknown]
  - Osteoarthritis [Unknown]
  - Dry eye [Unknown]
  - Sleep disorder [Recovering/Resolving]
  - Immunodeficiency [Unknown]
  - Rheumatoid arthritis [Unknown]
  - Thirst [Unknown]
  - Therapeutic product effect decreased [Unknown]
  - Dry throat [Unknown]
  - Hypersensitivity [Not Recovered/Not Resolved]
  - Psoriatic arthropathy [Unknown]
  - Condition aggravated [Unknown]
  - Ear pain [Recovering/Resolving]
  - Fatigue [Unknown]
  - Gastrointestinal disorder [Recovering/Resolving]
  - Vertigo [Recovering/Resolving]
  - Feeling abnormal [Unknown]
  - Gastric disorder [Recovering/Resolving]
  - Drug intolerance [Unknown]
